FAERS Safety Report 6437476-4 (Version None)
Quarter: 2009Q4

REPORT INFORMATION
  Report Type: 
  Country: None (occurrence: None)
  Receive Date: 20091112
  Receipt Date: 20091106
  Transmission Date: 20100525
  Serious: Yes (Other)
  Sender: FDA-Public Use
  Company Number: PHHY2009BR48808

PATIENT
  Age: 14 Year
  Sex: Female
  Weight: 49 kg

DRUGS (1)
  1. ELIDEL [Suspect]
     Indication: DERMATITIS ATOPIC
     Dosage: 1 APPLICATION 3 TIMES A DAY
     Route: 061

REACTIONS (5)
  - APPLICATION SITE ANAESTHESIA [None]
  - APPLICATION SITE BLEEDING [None]
  - APPLICATION SITE ODOUR [None]
  - APPLICATION SITE PAIN [None]
  - APPLICATION SITE PRURITUS [None]
